FAERS Safety Report 10222901 (Version 1)
Quarter: 2014Q2

REPORT INFORMATION
  Report Type: Spontaneous
  Country: IN (occurrence: IN)
  Receive Date: 20140607
  Receipt Date: 20140607
  Transmission Date: 20141212
  Serious: Yes (Hospitalization)
  Sender: FDA-Public Use
  Company Number: IN-009507513-1406IND002501

PATIENT
  Sex: Male

DRUGS (5)
  1. JANUVIA [Suspect]
     Indication: DIABETES MELLITUS
     Dosage: UNK, QD
     Route: 048
  2. HUMALOG [Concomitant]
     Dosage: 14 DF, QAM
  3. HUMALOG [Concomitant]
     Dosage: 12 DF, QPM
  4. HUMALOG [Concomitant]
     Dosage: 14 DF, QPM
  5. LANTUS [Concomitant]
     Dosage: 32 DF, QPM

REACTIONS (1)
  - Nerve injury [Not Recovered/Not Resolved]
